FAERS Safety Report 14776731 (Version 1)
Quarter: 2018Q2

REPORT INFORMATION
  Report Type: Report from Study
  Country: US (occurrence: US)
  Receive Date: 20180419
  Receipt Date: 20180419
  Transmission Date: 20180711
  Serious: Yes (Hospitalization, Disabling, Other)
  Sender: FDA-Public Use
  Company Number: US-BAXTER-2017BAX034389

PATIENT
  Age: 15 Year
  Sex: Female
  Weight: 82.1 kg

DRUGS (25)
  1. INCB018424 [Suspect]
     Active Substance: RUXOLITINIB
     Dosage: LAST DOSE PRIOR TO SAE
     Route: 048
     Dates: start: 20170724, end: 20170724
  2. MERCAPTOPURINE. [Suspect]
     Active Substance: MERCAPTOPURINE
     Dosage: 125 MG FOR 2 DAYS A WEEK AND 100 MG FOR 5 DAYS A WEEK, CYCLE 1, INTERIM MAINTENANCE PHASE
     Route: 065
     Dates: start: 20170829
  3. VINCRISTINE [Suspect]
     Active Substance: VINCRISTINE
     Dosage: LAST DOSE PRIOR TO SAE
     Route: 042
     Dates: start: 20170710, end: 20170710
  4. PEGASPARGASE [Suspect]
     Active Substance: PEGASPARGASE
     Dosage: LAST DOSE PRIOR TO SAE
     Route: 042
     Dates: start: 20170703, end: 20170703
  5. INCB018424 [Suspect]
     Active Substance: RUXOLITINIB
     Dosage: CYCLE 1, INTERIM MAINTENANCE PHASE
     Route: 048
     Dates: start: 20170829
  6. CYTARABINE. [Suspect]
     Active Substance: CYTARABINE
     Indication: ACUTE LYMPHOCYTIC LEUKAEMIA
     Dosage: DAILY FOR 4 DAYS,
     Route: 042
     Dates: start: 20170505
  7. VINCRISTINE [Suspect]
     Active Substance: VINCRISTINE
     Dosage: DAY 43, REGIMEN 2, LAST DOSE PRIOR TO FEBRILE NEUTROPENIA (SECOND EPISODE), PERIRECTAL ABSCESS
     Route: 042
     Dates: start: 20170603, end: 20171221
  8. CYTARABINE. [Suspect]
     Active Substance: CYTARABINE
     Dosage: DAILY FOR 4 DAYS, CYCLE 1 INTERIM MAINTENANCE PHASE
     Route: 042
     Dates: start: 20170829
  9. CYCLOPHOSPHAMIDE FOR INJECTION, USP [Suspect]
     Active Substance: CYCLOPHOSPHAMIDE
     Indication: ACUTE LYMPHOCYTIC LEUKAEMIA
     Dosage: REGIMEN 1, LAST DOSE PRIOR TO SAE
     Route: 042
     Dates: start: 20170719, end: 20170719
  10. MERCAPTOPURINE. [Suspect]
     Active Substance: MERCAPTOPURINE
     Dosage: LAST DOSE PRIOR TO SAE ON 24JUL2017
     Route: 065
     Dates: start: 20170724, end: 20170726
  11. METHOTREXATE. [Suspect]
     Active Substance: METHOTREXATE
     Dosage: LAST DOSE PRIOR TO SAE
     Route: 037
     Dates: start: 20170710, end: 20170710
  12. VINCRISTINE [Suspect]
     Active Substance: VINCRISTINE
     Indication: ACUTE LYMPHOCYTIC LEUKAEMIA
     Dosage: REGIMEN 1, DAYS 15, 22, 43 AND 50
     Route: 042
     Dates: start: 20170524
  13. INCB018424 [Suspect]
     Active Substance: RUXOLITINIB
     Dosage: DAYS 29 TO 42, REGIMEN 3, LAST DOSE PRIOR TO FEBRILE NEUTROPENIA (SECOND EPISODE, PERIRECTAL ABSCESS
     Route: 048
     Dates: start: 20170619, end: 20171220
  14. INCB018424 [Suspect]
     Active Substance: RUXOLITINIB
     Dosage: REGIMEN 4, DAY 1 OF INTERIM MAINTENANCE 2
     Route: 048
     Dates: start: 20180111
  15. CYTARABINE. [Suspect]
     Active Substance: CYTARABINE
     Dosage: DAYS 30 TO 57, REGIMEN 3, LAST DOSE PRIOR TO FEBRILE NEUTROPENIA (SECOND EPISODE, PERIRECTAL ABSCESS
     Route: 042
     Dates: start: 20170619, end: 20171217
  16. PEGASPARGASE [Suspect]
     Active Substance: PEGASPARGASE
     Dosage: DAY 43, REGIMEN 2, LAST DOSE PRIOR TO FEBRILE NEUTROPENIA (SECOND EPISODE), PERIRECTAL ABSCESS
     Route: 042
     Dates: start: 20170506, end: 20171221
  17. PEGASPARGASE [Suspect]
     Active Substance: PEGASPARGASE
     Dosage: DAY 2 OF INTERIM MAINTENANCE 2, REGIMEN 3,
     Route: 042
     Dates: start: 20180112
  18. THIOGUANINE [Suspect]
     Active Substance: THIOGUANINE
     Indication: ACUTE LYMPHOCYTIC LEUKAEMIA
     Dosage: DAYS 29 TO 42 WEEKLY, LAST DOSE PRIOR TO FEBRILE NEUTROPENIA (SECOND EPISODE, PERIRECTAL ABSCESS), 6
     Route: 048
     Dates: start: 20171207, end: 20171220
  19. INCB018424 [Suspect]
     Active Substance: RUXOLITINIB
     Route: 048
     Dates: start: 20170725, end: 20170726
  20. CYTARABINE. [Suspect]
     Active Substance: CYTARABINE
     Dosage: LAST DOSE PRIOR TO SAE ON 24JUL2017
     Route: 042
     Dates: start: 20170724, end: 20170726
  21. METHOTREXATE. [Suspect]
     Active Substance: METHOTREXATE
     Indication: ACUTE LYMPHOCYTIC LEUKAEMIA
     Dosage: REGIMEN 1, DAYS 1, 8, 15 AND 22
     Route: 037
     Dates: start: 20170510
  22. INCB018424 [Suspect]
     Active Substance: RUXOLITINIB
     Indication: ACUTE LYMPHOCYTIC LEUKAEMIA
     Route: 048
     Dates: start: 20170619
  23. MERCAPTOPURINE. [Suspect]
     Active Substance: MERCAPTOPURINE
     Indication: ACUTE LYMPHOCYTIC LEUKAEMIA
     Dosage: REGIMEN 1, 125 MG FOR 2 DAYS A WEEK AND 100 MG FOR 5 DAYS A WEEK
     Route: 065
     Dates: start: 20170619
  24. VINCRISTINE [Suspect]
     Active Substance: VINCRISTINE
     Dosage: DAY 50 OF DELAYED INTENSIFICATION, REGIMEN 3
     Route: 042
     Dates: start: 20180112
  25. PEGASPARGASE [Suspect]
     Active Substance: PEGASPARGASE
     Indication: ACUTE LYMPHOCYTIC LEUKAEMIA
     Dosage: REGIMEN 1, DAYS 15 AND 93
     Route: 042
     Dates: start: 20170524

REACTIONS (8)
  - Anorectal cellulitis [Recovered/Resolved]
  - Febrile neutropenia [Recovered/Resolved]
  - Encopresis [Recovered/Resolved]
  - Sepsis [Recovered/Resolved]
  - Encopresis [Recovered/Resolved]
  - Perirectal abscess [Recovered/Resolved]
  - Febrile neutropenia [Recovered/Resolved]
  - Bacterial infection [Recovered/Resolved]

NARRATIVE: CASE EVENT DATE: 20170724
